FAERS Safety Report 9424809 (Version 1)
Quarter: 2013Q3

REPORT INFORMATION
  Report Type: Spontaneous
  Country: US (occurrence: US)
  Receive Date: 20130729
  Receipt Date: 20130729
  Transmission Date: 20140515
  Serious: Yes (Hospitalization)
  Sender: FDA-Public Use
  Company Number: US-B.I. PHARMACEUTICALS,INC./RIDGEFIELD-2013-BI-21691BP

PATIENT
  Age: 76 Year
  Sex: Male
  Weight: 85 kg

DRUGS (11)
  1. PRADAXA [Suspect]
     Indication: ATRIAL FIBRILLATION
     Dosage: 150 MG
     Route: 048
     Dates: start: 2013
  2. XANAX [Concomitant]
     Indication: DEPRESSION
     Route: 048
  3. XANAX [Concomitant]
     Indication: ANXIETY
  4. PAXIL [Concomitant]
     Indication: DEPRESSION
     Dosage: 40 MG
     Route: 048
  5. LOPRESSOR [Concomitant]
     Indication: HYPERTENSION
     Dosage: 150 MG
     Route: 048
  6. LOPRESSOR [Concomitant]
     Indication: CORONARY ARTERY DISEASE
  7. LOTREL [Concomitant]
     Indication: HYPERTENSION
     Dosage: STRENGTH: 10 MG/20 MG; DAILY DOSE: 10 MG/20 MG
     Route: 048
  8. TEGRETOL [Concomitant]
     Dosage: 600 MG
     Route: 048
  9. SIMVASTATIN [Concomitant]
     Indication: BLOOD CHOLESTEROL INCREASED
     Dosage: 40 MG
     Route: 048
  10. PLAVIX [Concomitant]
     Indication: CORONARY ARTERY DISEASE
     Dosage: 75 MG
     Route: 048
  11. FLOMAX [Concomitant]
     Indication: BENIGN PROSTATIC HYPERPLASIA
     Dosage: 0.4 MG
     Route: 048

REACTIONS (5)
  - Respiratory failure [Recovered/Resolved]
  - Cerebrovascular accident [Not Recovered/Not Resolved]
  - Cardiac failure congestive [Recovered/Resolved]
  - Hypoxia [Recovered/Resolved]
  - Syncope [Recovered/Resolved]
